FAERS Safety Report 19432117 (Version 1)
Quarter: 2021Q2

REPORT INFORMATION
  Report Type: Spontaneous
  Country: CN (occurrence: CN)
  Receive Date: 20210617
  Receipt Date: 20210617
  Transmission Date: 20210717
  Serious: Yes (Hospitalization)
  Sender: FDA-Public Use
  Company Number: CN-EMD SERONO-9245411

PATIENT
  Age: 54 Year
  Sex: Female
  Weight: 72 kg

DRUGS (1)
  1. GLUCOPHAGE [Suspect]
     Active Substance: METFORMIN HYDROCHLORIDE
     Indication: DIABETES MELLITUS
     Route: 048
     Dates: start: 20210417, end: 20210419

REACTIONS (1)
  - Pruritus [Recovered/Resolved]

NARRATIVE: CASE EVENT DATE: 20210419
